FAERS Safety Report 6770763-9 (Version None)
Quarter: 2010Q2

REPORT INFORMATION
  Report Type: 
  Country: None (occurrence: None)
  Receive Date: 20100520
  Receipt Date: 20091103
  Transmission Date: 20101027
  Serious: Yes (Other)
  Sender: FDA-Public Use
  Company Number: 2009293632

PATIENT
  Age: 67 Year
  Weight: 52.6 kg

DRUGS (8)
  1. PROVERA [Suspect]
     Indication: HORMONE REPLACEMENT THERAPY
     Dosage: 2.5 MG, 2-3 TABLETS DAILY, ORAL
     Route: 048
     Dates: start: 19930101, end: 19990101
  2. MEDROXYPROGESTERONE [Suspect]
     Indication: HORMONE REPLACEMENT THERAPY
     Dosage: 2.5 MG, 2-3 TABLETS DAILY,ORAL
     Route: 048
     Dates: start: 19930101, end: 19990101
  3. PREMARIN [Suspect]
     Indication: HORMONE REPLACEMENT THERAPY
     Dates: start: 20010101, end: 20020101
  4. CLIMARA [Suspect]
     Indication: HORMONE REPLACEMENT THERAPY
     Dosage: 0.05 MG
  5. PREMPRO [Suspect]
     Indication: HORMONE REPLACEMENT THERAPY
     Dates: start: 19920101, end: 20020101
  6. LIPITOR [Concomitant]
  7. HYZAAR [Concomitant]
  8. ATENOLOL [Concomitant]

REACTIONS (1)
  - ENDOMETRIAL CANCER [None]
